FAERS Safety Report 21613504 (Version 1)
Quarter: 2022Q4

REPORT INFORMATION
  Report Type: Report from Study
  Country: US (occurrence: US)
  Receive Date: 20221118
  Receipt Date: 20221118
  Transmission Date: 20230112
  Serious: No
  Sender: FDA-Public Use
  Company Number: US-ABBVIE-4174655

PATIENT
  Age: 77 Year
  Sex: Female

DRUGS (1)
  1. HUMIRA [Suspect]
     Active Substance: ADALIMUMAB
     Indication: Rheumatoid arthritis
     Route: 058
     Dates: start: 20220729, end: 20221020

REACTIONS (6)
  - Influenza [Unknown]
  - Pneumonia [Unknown]
  - Sinus congestion [Unknown]
  - Lethargy [Unknown]
  - Lower respiratory tract congestion [Unknown]
  - Pain [Unknown]

NARRATIVE: CASE EVENT DATE: 20220720
